FAERS Safety Report 9295034 (Version 1)
Quarter: 2013Q1

REPORT INFORMATION
  Report Type: Spontaneous
  Country: US (occurrence: None)
  Receive Date: 20121227
  Receipt Date: 20121227
  Transmission Date: 20140127
  Serious: No
  Sender: FDA-Public Use
  Company Number: PHEH2012US020366

PATIENT
  Age: 59 Year
  Sex: Male

DRUGS (10)
  1. AFINITOR 9RAD) UNKNOWN [Suspect]
     Indication: DISEASE PROGRESSION
  2. WARFARIN (WARFARIN) [Concomitant]
  3. METOPROLOL (METOPROLOL) [Concomitant]
  4. MULTIVITAMINS (VITAMINS NOS) [Concomitant]
  5. RENAL CPAS [Concomitant]
  6. SENNA (SENNA, SENNA ALEXANDRINA) [Concomitant]
  7. IRON (IRON) [Concomitant]
  8. METHADONE (METHADONE) [Concomitant]
  9. SEROQUEL (QUETIAPINE FUMARATE) [Concomitant]
  10. QUETIAPINE (QUETIAPINE) [Concomitant]

REACTIONS (1)
  - Nail disorder [None]
